FAERS Safety Report 23720969 (Version 1)
Quarter: 2024Q2

REPORT INFORMATION
  Report Type: Spontaneous
  Country: CN (occurrence: CN)
  Receive Date: 20240409
  Receipt Date: 20240409
  Transmission Date: 20240716
  Serious: Yes (Hospitalization)
  Sender: FDA-Public Use
  Company Number: CN-HALEON-CNCH2024APC016194

PATIENT
  Age: 44 Year
  Sex: Male
  Weight: 86 kg

DRUGS (1)
  1. IBU [Suspect]
     Active Substance: IBUPROFEN
     Indication: Toothache
     Route: 048
     Dates: start: 20240223, end: 20240225

REACTIONS (7)
  - Erythema [Recovered/Resolved]
  - Blister rupture [Recovered/Resolved]
  - Rash [Recovered/Resolved]
  - Skin erosion [Recovered/Resolved]
  - Blister [Recovered/Resolved]
  - Pruritus [Recovered/Resolved]
  - Pain [Recovered/Resolved]

NARRATIVE: CASE EVENT DATE: 20240225
